FAERS Safety Report 25313865 (Version 3)
Quarter: 2025Q2

REPORT INFORMATION
  Report Type: Spontaneous
  Country: US (occurrence: US)
  Receive Date: 20250514
  Receipt Date: 20250616
  Transmission Date: 20250716
  Serious: Yes (Hospitalization)
  Sender: BIOGEN
  Company Number: US-BIOGEN-2025BI01301933

PATIENT
  Age: 35 Year
  Sex: Female

DRUGS (3)
  1. SKYCLARYS [Suspect]
     Active Substance: OMAVELOXOLONE
     Indication: Friedreich^s ataxia
     Route: 050
     Dates: start: 20240523
  2. SKYCLARYS [Suspect]
     Active Substance: OMAVELOXOLONE
     Route: 050
  3. SKYCLARYS [Suspect]
     Active Substance: OMAVELOXOLONE
     Dosage: 50 MG, 3 CAPSULES ONCE DAILY, ORAL
     Route: 050

REACTIONS (6)
  - Cholelithiasis [Recovered/Resolved]
  - White blood cell count increased [Recovered/Resolved]
  - Dehydration [Unknown]
  - Aspartate aminotransferase increased [Recovered/Resolved]
  - Alanine aminotransferase increased [Recovered/Resolved]
  - Diarrhoea [Unknown]

NARRATIVE: CASE EVENT DATE: 20250408
